FAERS Safety Report 7931678-3 (Version None)
Quarter: 2011Q4

REPORT INFORMATION
  Report Type: 
  Country: None (occurrence: None)
  Receive Date: 20111121
  Receipt Date: 20111110
  Transmission Date: 20120403
  Serious: Yes (Other)
  Sender: FDA-Public Use
  Company Number: PHEH2011US009149

PATIENT
  Sex: Female

DRUGS (3)
  1. VIVELLE-DOT [Suspect]
     Dosage: 0.037 MG, QW2
     Route: 062
  2. MEDROXYPROGESTERONE ACETATE [Suspect]
  3. PROVERA [Concomitant]

REACTIONS (4)
  - BREAST MASS [None]
  - DRUG INEFFECTIVE [None]
  - VEIN DISORDER [None]
  - FIBROCYSTIC BREAST DISEASE [None]
